FAERS Safety Report 4358385-0 (Version None)
Quarter: 2004Q2

REPORT INFORMATION
  Report Type: 
  Country: None (occurrence: None)
  Receive Date: 20040512
  Receipt Date: 20040512
  Transmission Date: 20050107
  Serious: Yes (Life-Threatening)
  Sender: FDA-Public Use
  Company Number: None

PATIENT
  Age: 71 Year
  Sex: Female
  Weight: 58.9676 kg

DRUGS (2)
  1. VIOXX [Suspect]
     Indication: ARTHRITIS
  2. TYLENOL [Suspect]
     Indication: MUSCLE STRAIN

REACTIONS (1)
  - FOOT FRACTURE [None]
